FAERS Safety Report 10251264 (Version 1)
Quarter: 2014Q2

REPORT INFORMATION
  Report Type: Spontaneous
  Country: US (occurrence: US)
  Receive Date: 20140621
  Receipt Date: 20140621
  Transmission Date: 20141212
  Serious: No
  Sender: FDA-Public Use
  Company Number: US-009507513-1406USA006884

PATIENT
  Sex: Female
  Weight: 58.9 kg

DRUGS (1)
  1. NEXPLANON [Suspect]
     Indication: CONTRACEPTION
     Dosage: 3 YEAR IMPLANT,IN RIGHT ARM
     Route: 059
     Dates: start: 20140529

REACTIONS (6)
  - Chest discomfort [Unknown]
  - Back pain [Unknown]
  - Menstruation delayed [Unknown]
  - Menorrhagia [Unknown]
  - Musculoskeletal discomfort [Unknown]
  - Mood altered [Unknown]
